FAERS Safety Report 18344378 (Version 1)
Quarter: 2020Q4

REPORT INFORMATION
  Report Type: Spontaneous
  Country: US (occurrence: US)
  Receive Date: 20201005
  Receipt Date: 20201005
  Transmission Date: 20210114
  Serious: No
  Sender: FDA-Public Use
  Company Number: US-PFIZER INC-2020381753

PATIENT
  Age: 73 Year
  Sex: Female
  Weight: 50.79 kg

DRUGS (4)
  1. CRESTOR [Concomitant]
     Active Substance: ROSUVASTATIN CALCIUM
     Indication: BLOOD CHOLESTEROL
     Dosage: 5 MG, ALTERNATE DAY (EVERY OTHER DAY)
     Route: 048
  2. FENTANYL CITRATE. [Suspect]
     Active Substance: FENTANYL CITRATE
     Dosage: UNK
  3. VERAPAMIL [Concomitant]
     Active Substance: VERAPAMIL HYDROCHLORIDE
     Indication: SUPRAVENTRICULAR TACHYCARDIA
     Dosage: 120 MG, 1X/DAY
     Route: 048
  4. VERSED [Suspect]
     Active Substance: MIDAZOLAM HYDROCHLORIDE
     Indication: SEDATION
     Dosage: UNK
     Route: 042

REACTIONS (6)
  - Confusional state [Unknown]
  - Fatigue [Unknown]
  - Blood pressure increased [Unknown]
  - Mood altered [Unknown]
  - Heart rate increased [Unknown]
  - Fall [Unknown]
